FAERS Safety Report 6651745-4 (Version None)
Quarter: 2010Q1

REPORT INFORMATION
  Report Type: 
  Country: None (occurrence: None)
  Receive Date: 20100325
  Receipt Date: 20100316
  Transmission Date: 20100710
  Serious: Yes (Hospitalization, Other)
  Sender: FDA-Public Use
  Company Number: US-ASTRAZENECA-2010SE11512

PATIENT
  Age: 73 Year
  Sex: Female
  Weight: 101.5 kg

DRUGS (18)
  1. PRILOSEC [Suspect]
     Route: 048
     Dates: end: 20091201
  2. PRILOSEC [Suspect]
     Route: 048
     Dates: end: 20100201
  3. PLAVIX [Suspect]
     Indication: MYOCARDIAL INFARCTION
     Route: 048
     Dates: start: 20091220
  4. PLAVIX [Suspect]
     Indication: STENT PLACEMENT
     Route: 048
     Dates: start: 20091220
  5. GAVISCON [Concomitant]
     Route: 065
  6. HUMALOG [Concomitant]
     Route: 065
     Dates: start: 19850101
  7. LANTUS [Concomitant]
     Route: 065
  8. TRICOR [Concomitant]
     Route: 065
  9. VYTORIN [Concomitant]
     Route: 065
  10. RAMIPRIL [Concomitant]
     Route: 065
     Dates: start: 20000101
  11. FUROSEMIDE [Concomitant]
     Route: 065
     Dates: start: 20000101
  12. CARVEDILOL [Concomitant]
     Route: 065
     Dates: start: 20091201
  13. MESTINON [Concomitant]
     Route: 065
     Dates: start: 19950101
  14. ASPIRIN [Concomitant]
     Route: 065
     Dates: start: 19900101
  15. MULTI-VITAMINS [Concomitant]
     Route: 065
  16. CALCIUM [Concomitant]
     Route: 065
  17. LORAZEPAM [Concomitant]
     Route: 065
     Dates: start: 20050101
  18. ALL OTHER THERAPEUTIC PRODUCTS [Concomitant]
     Route: 065
     Dates: start: 20090101

REACTIONS (4)
  - FLATULENCE [None]
  - MYOCARDIAL INFARCTION [None]
  - NAUSEA [None]
  - STENT PLACEMENT [None]
